FAERS Safety Report 10458784 (Version 2)
Quarter: 2014Q3

REPORT INFORMATION
  Report Type: Report from Study
  Country: AU (occurrence: AU)
  Receive Date: 20140917
  Receipt Date: 20140917
  Transmission Date: 20150326
  Serious: Yes (Other)
  Sender: FDA-Public Use
  Company Number: PHHY2014AU107491

PATIENT
  Sex: Female

DRUGS (1)
  1. ACLASTA [Suspect]
     Active Substance: ZOLEDRONIC ACID
     Dosage: 5 MG
     Route: 042

REACTIONS (10)
  - Ear infection [Unknown]
  - Diabetes mellitus [Unknown]
  - Laryngitis [Unknown]
  - Gastroenteritis viral [Unknown]
  - Bronchitis chronic [Unknown]
  - Hip fracture [Unknown]
  - Bronchitis viral [Unknown]
  - Ear pain [Unknown]
  - Malaise [Unknown]
  - Diarrhoea [Unknown]
